FAERS Safety Report 17347970 (Version 1)
Quarter: 2020Q1

REPORT INFORMATION
  Report Type: Spontaneous
  Country: US (occurrence: US)
  Receive Date: 20200128
  Receipt Date: 20200128
  Transmission Date: 20200409
  Serious: Yes (Other)
  Sender: FDA-Public Use
  Company Number: None

PATIENT
  Age: 58 Year
  Sex: Female
  Weight: 71.55 kg

DRUGS (4)
  1. KETO SPARK [Suspect]
     Active Substance: DIETARY SUPPLEMENT
     Indication: WEIGHT INCREASED
  2. GABA [Concomitant]
     Active Substance: HOMEOPATHICS
  3. FLAXSEED [Concomitant]
     Active Substance: FLAX SEED
  4. VIT D [Concomitant]
     Active Substance: VITAMIN D NOS

REACTIONS (5)
  - Confusional state [None]
  - Loss of personal independence in daily activities [None]
  - Thinking abnormal [None]
  - Impaired work ability [None]
  - Feeling abnormal [None]

NARRATIVE: CASE EVENT DATE: 20181130
